FAERS Safety Report 6127847-8 (Version None)
Quarter: 2009Q1

REPORT INFORMATION
  Report Type: 
  Country: None (occurrence: None)
  Receive Date: 20090319
  Receipt Date: 20090318
  Transmission Date: 20090719
  Serious: Yes (Death, Hospitalization)
  Sender: FDA-Public Use
  Company Number: 2008SP025273

PATIENT
  Age: 41 Year
  Sex: Male

DRUGS (3)
  1. TEMODAL [Suspect]
     Indication: ANAPLASTIC ASTROCYTOMA
     Dosage: 120 MG;QD;PO ; 220 MG;QD;PO ; 300 MG;QD;PO
     Route: 048
     Dates: start: 20061226, end: 20070207
  2. TEMODAL [Suspect]
     Indication: ANAPLASTIC ASTROCYTOMA
     Dosage: 120 MG;QD;PO ; 220 MG;QD;PO ; 300 MG;QD;PO
     Route: 048
     Dates: start: 20070305, end: 20070309
  3. TEMODAL [Suspect]
     Indication: ANAPLASTIC ASTROCYTOMA
     Dosage: 120 MG;QD;PO ; 220 MG;QD;PO ; 300 MG;QD;PO
     Route: 048
     Dates: start: 20070402, end: 20081019

REACTIONS (4)
  - ANOREXIA [None]
  - BRAIN NEOPLASM [None]
  - DISEASE PROGRESSION [None]
  - PNEUMONIA BACTERIAL [None]
